FAERS Safety Report 4911746-0 (Version None)
Quarter: 2006Q1

REPORT INFORMATION
  Report Type: 
  Country: None (occurrence: None)
  Receive Date: 20060215
  Receipt Date: 20060206
  Transmission Date: 20060701
  Serious: Yes (Other)
  Sender: FDA-Public Use
  Company Number: GB-JNJFOC-20060201858

PATIENT
  Age: 67 Year
  Sex: Female
  Weight: 65 kg

DRUGS (12)
  1. REMICADE [Suspect]
     Indication: RHEUMATOID ARTHRITIS
     Route: 042
  2. METHOTREXATE [Concomitant]
     Route: 030
  3. PREDNISOLONE [Concomitant]
     Route: 048
  4. FOLIC ACID [Concomitant]
  5. FRUSEMIDE [Concomitant]
  6. FOSAMAX [Concomitant]
  7. DIHYDROCODEINE [Concomitant]
     Dosage: 4-6 A DAY
  8. GLICLAZIDE [Concomitant]
  9. SIMVASTATIN [Concomitant]
  10. DOTHIEPIN HYDROCHLORIDE [Concomitant]
     Dosage: EVENING DOSE ONLY
  11. ASPIRIN [Concomitant]
  12. MELOXICAM [Concomitant]

REACTIONS (1)
  - FACIAL PALSY [None]
